FAERS Safety Report 9602569 (Version 2)
Quarter: 2013Q4

REPORT INFORMATION
  Report Type: Spontaneous
  Country: US (occurrence: US)
  Receive Date: 20131007
  Receipt Date: 20131025
  Transmission Date: 20140711
  Serious: Yes (Other)
  Sender: FDA-Public Use
  Company Number: US-PFIZER INC-2013283417

PATIENT
  Age: 62 Year
  Sex: Female

DRUGS (9)
  1. DILANTIN-125 [Suspect]
     Indication: CONVULSION
     Dosage: 500 MG, 1X/DAY (Q.H.S)
     Dates: start: 1960, end: 201003
  2. DILANTIN-125 [Suspect]
     Dosage: 400 MG, 1X/DAY (Q.H.S., FOR A WEEK)
  3. DILANTIN-125 [Suspect]
     Dosage: 300 MG, 1X/DAY (Q.H.S., FOR A WEEK)
  4. DILANTIN-125 [Suspect]
     Dosage: 200 MG, 1X/DAY (Q.H.S., FOR A WEEK)
  5. DILANTIN-125 [Suspect]
     Dosage: 100 MG, 1X/DAY (Q.H.S., FOR A WEEK)
  6. PRIMIDONE [Concomitant]
     Dosage: 250 MG, 2X/DAY
  7. SYNTHROID [Concomitant]
     Dosage: 75 MG, 1X/DAY
  8. PAXIL [Concomitant]
     Dosage: 20 MG, 1X/DAY
  9. VITAMIN D [Concomitant]
     Dosage: UNK, 50000 Q WEEK

REACTIONS (4)
  - Cerebellar atrophy [Not Recovered/Not Resolved]
  - Nervous system disorder [Unknown]
  - Neuropathy peripheral [Not Recovered/Not Resolved]
  - Limb deformity [Unknown]
